FAERS Safety Report 9915949 (Version 1)
Quarter: 2014Q1

REPORT INFORMATION
  Report Type: Spontaneous
  Country: US (occurrence: None)
  Receive Date: 20140219
  Receipt Date: 20140219
  Transmission Date: 20141002
  Serious: Yes (Disabling, Other)
  Sender: FDA-Public Use
  Company Number: 1402-0322

PATIENT
  Age: 77 Year
  Sex: Male

DRUGS (1)
  1. EYLEA (AFLIBERCEPT)(INJECTION)(AFLIBERCEPT) [Suspect]
     Indication: MACULAR DEGENERATION
     Dosage: 1 IN 7 WK
     Dates: start: 2010

REACTIONS (4)
  - Inflammation [None]
  - Visual acuity reduced [None]
  - Eye pain [None]
  - Lacrimation increased [None]
